FAERS Safety Report 5639642-4 (Version None)
Quarter: 2008Q1

REPORT INFORMATION
  Report Type: 
  Country: None (occurrence: None)
  Receive Date: 20080222
  Receipt Date: 20080211
  Transmission Date: 20080703
  Serious: Yes (Hospitalization)
  Sender: FDA-Public Use
  Company Number: DSU-2008-00192

PATIENT
  Age: 45 Year
  Sex: Female
  Weight: 68.4932 kg

DRUGS (4)
  1. BENICAR [Suspect]
     Indication: HYPERTENSION
     Dosage: 20 MG (20 MG,QD), PER ORAL
     Route: 048
     Dates: start: 20070401, end: 20080101
  2. BENICAR HCT [Suspect]
     Indication: HYPERTENSION
     Dosage: 20/12/5 MG (QD), PER ORAL
     Route: 048
     Dates: start: 20080101
  3. VIVELLE [Suspect]
     Indication: HORMONE REPLACEMENT THERAPY
     Dosage: TRANSDERMAL
     Route: 062
  4. GRAPEFRUIT (ALL OTHER NON-THERAPEUTIC PRODUCTS) [Suspect]
     Dosage: PER ORAL
     Route: 048

REACTIONS (3)
  - BLOOD PRESSURE INCREASED [None]
  - FOOD INTERACTION [None]
  - MALAISE [None]
